FAERS Safety Report 7500795-4 (Version None)
Quarter: 2011Q2

REPORT INFORMATION
  Report Type: 
  Country: None (occurrence: None)
  Receive Date: 20110524
  Receipt Date: 20110517
  Transmission Date: 20111010
  Serious: Yes (Death)
  Sender: FDA-Public Use
  Company Number: BR-MEDIMMUNE-MEDI-0013207

PATIENT
  Weight: 0.75 kg

DRUGS (2)
  1. SYNAGIS [Suspect]
  2. SYNAGIS [Suspect]
     Indication: CONGENITAL CARDIOVASCULAR ANOMALY

REACTIONS (5)
  - CONGENITAL CARDIOVASCULAR ANOMALY [None]
  - PREMATURE BABY [None]
  - NECROTISING COLITIS [None]
  - SEPSIS NEONATAL [None]
  - PULMONARY HAEMORRHAGE [None]
